FAERS Safety Report 15592329 (Version 2)
Quarter: 2024Q4

REPORT INFORMATION
  Report Type: Report from Study
  Country: CA (occurrence: CA)
  Receive Date: 20181107
  Receipt Date: 20241024
  Transmission Date: 20250115
  Serious: Yes (Hospitalization, Other)
  Sender: TAKEDA
  Company Number: CA-TAKEDA-2018TUS024602

PATIENT
  Sex: Female

DRUGS (3)
  1. VEDOLIZUMAB [Suspect]
     Active Substance: VEDOLIZUMAB
     Indication: Crohn^s disease
     Dosage: 300 MILLIGRAM
     Route: 042
     Dates: start: 20180625
  2. VEDOLIZUMAB [Suspect]
     Active Substance: VEDOLIZUMAB
     Dosage: 300 MILLIGRAM
     Route: 042
  3. DOXYCYCLINE [Suspect]
     Active Substance: DOXYCYCLINE
     Indication: Fungal infection
     Dosage: UNK
     Route: 065
     Dates: start: 20180727

REACTIONS (6)
  - Lower respiratory tract infection [Unknown]
  - Pneumonia [Unknown]
  - Fungal infection [Unknown]
  - Psoriasis [Not Recovered/Not Resolved]
  - Productive cough [Not Recovered/Not Resolved]
  - Lymphadenopathy [Unknown]
